FAERS Safety Report 8857214 (Version 1)
Quarter: 2012Q4

REPORT INFORMATION
  Report Type: 
  Country: ES (occurrence: ES)
  Receive Date: 20121024
  Receipt Date: 20121024
  Transmission Date: 20130627
  Serious: Yes (Hospitalization, Other)
  Sender: FDA-Public Use
  Company Number: ES-ELI_LILLY_AND_COMPANY-ES201210006944

PATIENT
  Age: 68 Year
  Sex: Female

DRUGS (4)
  1. RALOXIFENE HYDROCHLORIDE [Suspect]
     Indication: OSTEOPOROSIS
     Dosage: 60 mg, qd
     Route: 048
     Dates: start: 20041001, end: 2012
  2. RALOXIFENE HYDROCHLORIDE [Suspect]
     Dosage: 60 mg, qd
     Route: 048
     Dates: start: 2012
  3. IDAPTAN [Concomitant]
     Indication: PRODUCT USED FOR UNKNOWN INDICATION
     Dosage: UNK
     Route: 048
     Dates: start: 20090512
  4. LORAZEPAM [Concomitant]
     Indication: PRODUCT USED FOR UNKNOWN INDICATION
     Dosage: UNK
     Route: 048
     Dates: start: 20100511

REACTIONS (1)
  - Pancreatitis [Recovering/Resolving]
